FAERS Safety Report 23998550 (Version 1)
Quarter: 2024Q2

REPORT INFORMATION
  Report Type: Spontaneous
  Country: US (occurrence: US)
  Receive Date: 20240621
  Receipt Date: 20240621
  Transmission Date: 20240716
  Serious: No
  Sender: FDA-Public Use
  Company Number: US-ROCHE-10000004223

PATIENT
  Sex: Female

DRUGS (3)
  1. HERCEPTIN [Suspect]
     Active Substance: TRASTUZUMAB
     Indication: Product used for unknown indication
     Route: 065
  2. TUKYSA [Concomitant]
     Active Substance: TUCATINIB
     Route: 048
     Dates: start: 20210515
  3. TUKYSA [Concomitant]
     Active Substance: TUCATINIB
     Route: 048
     Dates: start: 20210515

REACTIONS (1)
  - Vomiting [Unknown]
